FAERS Safety Report 17362244 (Version 2)
Quarter: 2020Q1

REPORT INFORMATION
  Report Type: Spontaneous
  Country: US (occurrence: US)
  Receive Date: 20200203
  Receipt Date: 20200311
  Transmission Date: 20200409
  Serious: Yes (Other)
  Sender: FDA-Public Use
  Company Number: US-PFIZER INC-2020042524

PATIENT
  Age: 44 Year
  Sex: Female
  Weight: 92.8 kg

DRUGS (1)
  1. ROCURONIUM BROMIDE. [Suspect]
     Active Substance: ROCURONIUM BROMIDE
     Dosage: 100 MG, UNK

REACTIONS (2)
  - Blister [Unknown]
  - Coma [Unknown]

NARRATIVE: CASE EVENT DATE: 20150303
